FAERS Safety Report 16060075 (Version 4)
Quarter: 2019Q3

REPORT INFORMATION
  Report Type: Spontaneous
  Country: CA (occurrence: CA)
  Receive Date: 20190312
  Receipt Date: 20190919
  Transmission Date: 20191004
  Serious: Yes (Hospitalization)
  Sender: FDA-Public Use
  Company Number: CA-ROCHE-2281197

PATIENT
  Age: 54 Year
  Sex: Female

DRUGS (1)
  1. XOLAIR [Suspect]
     Active Substance: OMALIZUMAB
     Indication: ASTHMA
     Route: 058
     Dates: start: 20120904

REACTIONS (15)
  - Agoraphobia [Unknown]
  - Hot flush [Unknown]
  - Balance disorder [Unknown]
  - Haemorrhage [Unknown]
  - Memory impairment [Unknown]
  - Wheezing [Unknown]
  - Influenza [Unknown]
  - Feeling abnormal [Unknown]
  - Pneumonia [Unknown]
  - Asthma [Unknown]
  - Myalgia [Unknown]
  - Hypersomnia [Unknown]
  - Anxiety [Unknown]
  - Malaise [Unknown]
  - Haemoglobin decreased [Unknown]

NARRATIVE: CASE EVENT DATE: 201902
